FAERS Safety Report 8035506-X (Version None)
Quarter: 2012Q1

REPORT INFORMATION
  Report Type: 
  Country: None (occurrence: None)
  Receive Date: 20120111
  Receipt Date: 20120102
  Transmission Date: 20120608
  Serious: Yes (Other)
  Sender: FDA-Public Use
  Company Number: IN-PAR PHARMACEUTICAL, INC-2012SCPR003898

PATIENT

DRUGS (5)
  1. PAROXETINE [Concomitant]
     Indication: OBSESSIVE-COMPULSIVE DISORDER
     Dosage: 12.5 MG, /DAY
     Route: 065
  2. FLUVOXAMINE MALEATE [Interacting]
     Indication: OBSESSIVE-COMPULSIVE DISORDER
     Dosage: 50 MG, / DAY
     Route: 065
  3. FLUVOXAMINE MALEATE [Interacting]
     Dosage: 150 MG, / DAY
     Route: 065
  4. RISPERIDONE [Suspect]
     Indication: OBSESSIVE-COMPULSIVE DISORDER
     Dosage: 3 MG, / DAY
     Route: 065
  5. CLOMIPRAMINE HCL [Concomitant]
     Indication: OBSESSIVE-COMPULSIVE DISORDER
     Dosage: 75 MG, / DAY
     Route: 065

REACTIONS (3)
  - DRUG INTERACTION [None]
  - GALACTORRHOEA [None]
  - GYNAECOMASTIA [None]
